FAERS Safety Report 5007118-3 (Version None)
Quarter: 2006Q2

REPORT INFORMATION
  Report Type: 
  Country: None (occurrence: None)
  Receive Date: 20060519
  Receipt Date: 20060307
  Transmission Date: 20061013
  Serious: Yes (Death, Hospitalization)
  Sender: FDA-Public Use
  Company Number: DE-ABBOTT-06P-062-0327587-00

PATIENT
  Sex: Male

DRUGS (3)
  1. KALETRA [Suspect]
     Indication: HIV INFECTION
     Route: 048
     Dates: start: 20031203
  2. DIDANOSINE [Concomitant]
     Indication: HIV INFECTION
     Dates: end: 20030301
  3. TENOFOVIR [Concomitant]
     Indication: HIV INFECTION
     Dates: end: 20030301

REACTIONS (11)
  - AGGRESSION [None]
  - CONFUSIONAL STATE [None]
  - HAEMOGLOBIN DECREASED [None]
  - HEPATIC ENZYME INCREASED [None]
  - MENINGEAL DISORDER [None]
  - PNEUMONIA [None]
  - PYREXIA [None]
  - SEPSIS [None]
  - SOMNOLENCE [None]
  - STUPOR [None]
  - TUBERCULOSIS [None]
